FAERS Safety Report 7053822-5 (Version None)
Quarter: 2010Q4

REPORT INFORMATION
  Report Type: 
  Country: None (occurrence: None)
  Receive Date: 20101020
  Receipt Date: 20101008
  Transmission Date: 20110411
  Serious: Yes (Other)
  Sender: FDA-Public Use
  Company Number: US-SANOFI-AVENTIS-2010SA062417

PATIENT
  Age: 59 Year
  Sex: Female

DRUGS (8)
  1. PLAQUENIL [Suspect]
     Indication: SCLERODERMA
     Route: 048
  2. CLONAZEPAM [Concomitant]
  3. METOCLOPRAMIDE [Concomitant]
  4. PANTOPRAZOLE [Concomitant]
  5. ATENOLOL [Concomitant]
  6. BUDESONIDE/FORMOTEROL [Concomitant]
  7. VITAMIN D [Concomitant]
  8. CALCIUM [Concomitant]

REACTIONS (3)
  - MYALGIA [None]
  - RENAL IMPAIRMENT [None]
  - TUBULOINTERSTITIAL NEPHRITIS [None]
